FAERS Safety Report 25344247 (Version 1)
Quarter: 2025Q2

REPORT INFORMATION
  Report Type: Spontaneous
  Country: US (occurrence: None)
  Receive Date: 20250521
  Receipt Date: 20250521
  Transmission Date: 20250716
  Serious: Yes (Disabling, Other)
  Sender: FDA-CTU
  Company Number: None

PATIENT
  Age: 24 Year
  Sex: Female
  Weight: 51.75 kg

DRUGS (1)
  1. CIPROFLOXACIN [Suspect]
     Active Substance: CIPROFLOXACIN
     Indication: Urinary tract infection
     Dates: start: 20250322, end: 20250323

REACTIONS (7)
  - Tendonitis [None]
  - Arthropathy [None]
  - Arthralgia [None]
  - Fatigue [None]
  - Dizziness [None]
  - Weight decreased [None]
  - Muscle disorder [None]

NARRATIVE: CASE EVENT DATE: 20250322
